FAERS Safety Report 16246066 (Version 1)
Quarter: 2019Q2

REPORT INFORMATION
  Report Type: Report from Study
  Country: US (occurrence: US)
  Receive Date: 20190426
  Receipt Date: 20190426
  Transmission Date: 20190711
  Serious: Yes (Other)
  Sender: FDA-Public Use
  Company Number: US-ACTELION-A-US2018-182393

PATIENT
  Age: 35 Year
  Sex: Male

DRUGS (6)
  1. VENTOLIN HFA [Concomitant]
     Active Substance: ALBUTEROL SULFATE
  2. TADALAFIL. [Concomitant]
     Active Substance: TADALAFIL
  3. INSPRA [Concomitant]
     Active Substance: EPLERENONE
  4. OPSUMIT [Suspect]
     Active Substance: MACITENTAN
     Indication: PULMONARY ARTERIAL HYPERTENSION
     Dosage: 10 MG, QD
     Route: 048
     Dates: start: 20181106
  5. QVAR [Concomitant]
     Active Substance: BECLOMETHASONE DIPROPIONATE
  6. FUROSEMIDE. [Concomitant]
     Active Substance: FUROSEMIDE

REACTIONS (10)
  - Nausea [Recovered/Resolved]
  - Headache [Unknown]
  - Myalgia [Recovered/Resolved]
  - Fluid retention [Unknown]
  - Swelling [Unknown]
  - Vomiting [Recovered/Resolved]
  - Diarrhoea [Recovered/Resolved]
  - Viral infection [Recovered/Resolved]
  - Adverse event [Unknown]
  - Oedema [Unknown]

NARRATIVE: CASE EVENT DATE: 20181204
